FAERS Safety Report 17617638 (Version 1)
Quarter: 2020Q2

REPORT INFORMATION
  Report Type: Spontaneous
  Country: US (occurrence: US)
  Receive Date: 20200402
  Receipt Date: 20200402
  Transmission Date: 20200713
  Serious: No
  Sender: FDA-Public Use
  Company Number: US-CELGENEUS-USA-20200307969

PATIENT
  Age: 63 Year
  Sex: Male
  Weight: 119 kg

DRUGS (2)
  1. REVLIMID [Suspect]
     Active Substance: LENALIDOMIDE
     Dosage: 2.5 MILLIGRAM
     Route: 048
     Dates: start: 20200217
  2. REVLIMID [Suspect]
     Active Substance: LENALIDOMIDE
     Indication: PLASMA CELL MYELOMA
     Dosage: 2.5 MILLIGRAM
     Route: 048
     Dates: start: 202001

REACTIONS (8)
  - Hypophagia [Unknown]
  - Gastric disorder [Unknown]
  - Dysstasia [Unknown]
  - Dizziness [Unknown]
  - Back disorder [Unknown]
  - Diarrhoea [Not Recovered/Not Resolved]
  - Asthenia [Unknown]
  - Product dose omission [Unknown]

NARRATIVE: CASE EVENT DATE: 20200320
